FAERS Safety Report 6950422-X (Version None)
Quarter: 2010Q3

REPORT INFORMATION
  Report Type: 
  Country: None (occurrence: None)
  Receive Date: 20100828
  Receipt Date: 20100215
  Transmission Date: 20110219
  Serious: No
  Sender: FDA-Public Use
  Company Number: US-ABBOTT-10P-163-0626280-00

PATIENT
  Sex: Female
  Weight: 68.554 kg

DRUGS (8)
  1. NIASPAN [Suspect]
     Indication: BLOOD CHOLESTEROL INCREASED
     Dosage: 500MG X1 (500MG) AT BEDTIME
     Route: 048
     Dates: start: 20090801, end: 20090901
  2. NIASPAN [Suspect]
     Dosage: 500MG X2 (1000MG) AT BEDTIME
     Route: 048
     Dates: start: 20090901, end: 20091001
  3. NIASPAN [Suspect]
     Dosage: 500MG X3 (1500MG) AT BEDTIME
     Route: 048
     Dates: start: 20091001, end: 20091101
  4. NIASPAN [Suspect]
     Dosage: 500MG X4 (2000MG) AT BEDTIME
     Route: 048
     Dates: start: 20091101
  5. LISINOPRIL [Concomitant]
     Indication: PRODUCT USED FOR UNKNOWN INDICATION
     Route: 048
  6. COREG [Concomitant]
     Indication: PRODUCT USED FOR UNKNOWN INDICATION
     Route: 048
  7. METFORMIN [Concomitant]
     Indication: PRODUCT USED FOR UNKNOWN INDICATION
     Route: 048
  8. ASPIRIN [Concomitant]
     Indication: PRODUCT USED FOR UNKNOWN INDICATION
     Route: 048

REACTIONS (4)
  - ERYTHEMA [None]
  - FEELING HOT [None]
  - FLUSHING [None]
  - PRURITUS [None]
